FAERS Safety Report 9386053 (Version 1)
Quarter: 2013Q3

REPORT INFORMATION
  Report Type: Spontaneous
  Country: CA (occurrence: CA)
  Receive Date: 20130706
  Receipt Date: 20130706
  Transmission Date: 20140515
  Serious: Yes (Death, Hospitalization)
  Sender: FDA-Public Use
  Company Number: CA-009507513-1307CAN002933

PATIENT
  Age: 58 Year
  Sex: Male

DRUGS (2)
  1. PEGETRON [Suspect]
     Indication: HEPATITIS C
     Dosage: UNK
     Route: 051
  2. VICTRELIS [Suspect]
     Indication: HEPATITIS C
     Dosage: 200 MG, UNK
     Route: 048

REACTIONS (1)
  - Death [Fatal]
